FAERS Safety Report 5446652-9 (Version None)
Quarter: 2007Q3

REPORT INFORMATION
  Report Type: 
  Country: None (occurrence: None)
  Receive Date: 20070907
  Receipt Date: 20070905
  Transmission Date: 20080115
  Serious: Yes (Other)
  Sender: FDA-Public Use
  Company Number: US-SHR-US-2007-001731

PATIENT
  Age: 62 Year
  Sex: Female

DRUGS (2)
  1. BETASERON [Suspect]
     Indication: RELAPSING-REMITTING MULTIPLE SCLEROSIS
     Dosage: 8 MIU, EVERY 2D
     Route: 058
     Dates: start: 20060411
  2. BETASERON [Suspect]
     Dosage: 8 MIU, EVERY 2D
     Route: 058

REACTIONS (7)
  - ALOPECIA [None]
  - DRY SKIN [None]
  - HAIR TEXTURE ABNORMAL [None]
  - HUNGER [None]
  - INJECTION SITE ERYTHEMA [None]
  - RASH [None]
  - WEIGHT INCREASED [None]
